FAERS Safety Report 5407458-X (Version None)
Quarter: 2007Q3

REPORT INFORMATION
  Report Type: 
  Country: None (occurrence: None)
  Receive Date: 20070803
  Receipt Date: 20070718
  Transmission Date: 20080115
  Serious: Yes (Death, Hospitalization)
  Sender: FDA-Public Use
  Company Number: A-CH2007-16138

PATIENT
  Age: 76 Year
  Sex: Female
  Weight: 45 kg

DRUGS (6)
  1. TRACLEER [Suspect]
     Indication: PULMONARY HYPERTENSION
     Dosage: 62.5 MG, BID, ORAL
     Route: 048
     Dates: start: 20070527, end: 20070529
  2. AMIODARONE HCL [Concomitant]
  3. PREVISCAN (FLUINDIONE) [Concomitant]
  4. ALDACTONE [Concomitant]
  5. NEXIUM [Concomitant]
  6. LASIX [Concomitant]

REACTIONS (16)
  - ATRIAL FIBRILLATION [None]
  - CARDIO-RESPIRATORY ARREST [None]
  - CARDIOPULMONARY FAILURE [None]
  - ENTEROBACTER INFECTION [None]
  - ESCHERICHIA URINARY TRACT INFECTION [None]
  - FALL [None]
  - HEAD INJURY [None]
  - HYPOVOLAEMIA [None]
  - INTERNATIONAL NORMALISED RATIO INCREASED [None]
  - ISCHAEMIC HEPATITIS [None]
  - LACTIC ACIDOSIS [None]
  - PATHOGEN RESISTANCE [None]
  - PULMONARY HYPERTENSION [None]
  - RIGHT VENTRICULAR FAILURE [None]
  - SPUTUM CULTURE POSITIVE [None]
  - SYNCOPE [None]
